FAERS Safety Report 12492592 (Version 2)
Quarter: 2016Q4

REPORT INFORMATION
  Report Type: Spontaneous
  Country: US (occurrence: US)
  Receive Date: 20160623
  Receipt Date: 20161117
  Transmission Date: 20170207
  Serious: No
  Sender: FDA-Public Use
  Company Number: US-GLAXOSMITHKLINE-US2016GSK083515

PATIENT
  Age: 63 Year
  Sex: Female

DRUGS (1)
  1. ADVAIR DISKUS [Suspect]
     Active Substance: FLUTICASONE PROPIONATE\SALMETEROL XINAFOATE
     Indication: ASTHMA
     Dosage: UNK
     Dates: start: 1990

REACTIONS (4)
  - Malaise [Unknown]
  - Influenza [Unknown]
  - Nasopharyngitis [Unknown]
  - Auditory disorder [Unknown]

NARRATIVE: CASE EVENT DATE: 20160606
